FAERS Safety Report 7501127-8 (Version None)
Quarter: 2011Q2

REPORT INFORMATION
  Report Type: 
  Country: None (occurrence: None)
  Receive Date: 20110524
  Receipt Date: 20110517
  Transmission Date: 20111010
  Serious: Yes (Life-Threatening, Hospitalization)
  Sender: FDA-Public Use
  Company Number: FR-UCBSA-030077

PATIENT
  Sex: Female
  Weight: 60 kg

DRUGS (3)
  1. KEPPRA [Suspect]
     Indication: PROPHYLAXIS
     Route: 042
     Dates: start: 20110307, end: 20110324
  2. LASIX [Suspect]
     Indication: CARDIAC FAILURE
     Route: 042
     Dates: start: 20110319, end: 20110324
  3. ACETAMINOPHEN [Concomitant]
     Route: 042

REACTIONS (2)
  - AGRANULOCYTOSIS [None]
  - THROMBOCYTOPENIA [None]
